FAERS Safety Report 4354261-8 (Version None)
Quarter: 2004Q2

REPORT INFORMATION
  Report Type: 
  Country: None (occurrence: None)
  Receive Date: 20040503
  Receipt Date: 20040421
  Transmission Date: 20050107
  Serious: No
  Sender: FDA-Public Use
  Company Number: 2004-115255-NL

PATIENT
  Age: 40 Year
  Sex: Female

DRUGS (3)
  1. DESOGESTREL AND ETHINYL ESTRADIOL [Suspect]
     Dosage: DP
  2. NAPROXEN SODIUM [Concomitant]
  3. IRON SULPATE [Concomitant]

REACTIONS (2)
  - COLITIS [None]
  - RECTAL HAEMORRHAGE [None]
